FAERS Safety Report 25741058 (Version 2)
Quarter: 2025Q4

REPORT INFORMATION
  Report Type: Report from Study
  Country: US (occurrence: US)
  Receive Date: 20250829
  Receipt Date: 20251014
  Transmission Date: 20260118
  Serious: Yes (Death, Hospitalization, Other)
  Sender: MERZ
  Company Number: US-MERZ PHARMACEUTICALS LLC-ACO_178835_2025

PATIENT
  Age: 72 Year
  Sex: Female

DRUGS (10)
  1. INBRIJA [Suspect]
     Active Substance: LEVODOPA
     Indication: Parkinson^s disease
     Dosage: 2 DOSAGE FORM, TID
     Dates: start: 20231128, end: 20250716
  2. CARBIDOPA\LEVODOPA [Concomitant]
     Active Substance: CARBIDOPA\LEVODOPA
     Indication: Product used for unknown indication
     Dosage: 25-100 MILLIGRAM
     Route: 065
  3. GABAPENTIN [Concomitant]
     Active Substance: GABAPENTIN
     Indication: Product used for unknown indication
     Dosage: 100 MILLIGRAM
     Route: 065
  4. CALCIUM\VITAMIN D [Concomitant]
     Active Substance: CALCIUM\VITAMIN D
     Indication: Product used for unknown indication
     Dosage: 500 MILLIGRAM/200 UNIT
     Route: 065
  5. FLUDROCORTISONE [Concomitant]
     Active Substance: FLUDROCORTISONE
     Indication: Product used for unknown indication
     Dosage: 0.1 MILLIGRAM
     Route: 065
  6. VITAMINS NOS [Concomitant]
     Active Substance: VITAMINS
     Indication: Product used for unknown indication
     Dosage: UNK
     Route: 065
  7. MYRBETRIQ [Concomitant]
     Active Substance: MIRABEGRON
     Indication: Product used for unknown indication
     Dosage: 25 MILLIGRAM
     Route: 065
  8. PROLIA [Concomitant]
     Active Substance: DENOSUMAB
     Indication: Product used for unknown indication
     Dosage: 60 MG/ML, 1 ML
     Route: 065
  9. TIMOLOL MALEATE [Concomitant]
     Active Substance: TIMOLOL MALEATE
     Indication: Product used for unknown indication
     Dosage: 0.5 %, 15 ML
     Route: 065
  10. XADAGO [Concomitant]
     Active Substance: SAFINAMIDE MESYLATE
     Indication: Product used for unknown indication
     Dosage: 100 MILLIGRAM
     Route: 065

REACTIONS (2)
  - Pneumonia [Fatal]
  - Sepsis [Fatal]

NARRATIVE: CASE EVENT DATE: 20250812
